FAERS Safety Report 7340908-0 (Version None)
Quarter: 2011Q1

REPORT INFORMATION
  Report Type: 
  Country: None (occurrence: None)
  Receive Date: 20110309
  Receipt Date: 20100429
  Transmission Date: 20110831
  Serious: No
  Sender: FDA-Public Use
  Company Number: US-ABBOTT-10P-163-0642146-00

PATIENT
  Sex: Female
  Weight: 106.24 kg

DRUGS (2)
  1. LUPRON DEPOT [Suspect]
     Indication: ENDOMETRIOSIS
     Dates: start: 20100301
  2. NORETHINDRONE [Suspect]
     Indication: HORMONE REPLACEMENT THERAPY
     Dates: start: 20100301

REACTIONS (2)
  - HOT FLUSH [None]
  - DIARRHOEA [None]
